FAERS Safety Report 8093403-8 (Version None)
Quarter: 2012Q1

REPORT INFORMATION
  Report Type: 
  Country: None (occurrence: None)
  Receive Date: 20120131
  Receipt Date: 20120120
  Transmission Date: 20120608
  Serious: No
  Sender: FDA-Public Use
  Company Number: US-BAYER-2011-072570

PATIENT
  Age: 35 Year
  Sex: Female
  Weight: 117.91 kg

DRUGS (4)
  1. BACTRIM [Concomitant]
  2. YAZ [Suspect]
     Dosage: UNK
     Dates: start: 20070301, end: 20090101
  3. SYNTHROID [Concomitant]
     Indication: HYPOTHYROIDISM
     Dosage: 50 MG, QD
     Route: 048
     Dates: start: 20051101
  4. NAPROXEN [Concomitant]
     Indication: MIGRAINE
     Dosage: 500 MG, PRN
     Route: 048
     Dates: start: 20060101

REACTIONS (6)
  - MOOD SWINGS [None]
  - PAIN [None]
  - RASH [None]
  - MEMORY IMPAIRMENT [None]
  - INJURY [None]
  - DEPRESSION [None]
